FAERS Safety Report 7564778-0 (Version None)
Quarter: 2011Q2

REPORT INFORMATION
  Report Type: 
  Country: None (occurrence: None)
  Receive Date: 20110622
  Receipt Date: 20110110
  Transmission Date: 20111010
  Serious: Yes (Death)
  Sender: FDA-Public Use
  Company Number: US-MYLANLABS-2010S1020943

PATIENT
  Age: 48 Year
  Sex: Female
  Weight: 84.82 kg

DRUGS (7)
  1. TOPAMAX [Concomitant]
     Dosage: TWO TABLETS
  2. NEURONTIN [Concomitant]
  3. SEROQUEL [Concomitant]
  4. KLONOPIN [Concomitant]
  5. CLOZAPINE [Suspect]
     Indication: SCHIZOPHRENIA, PARANOID TYPE
     Dates: start: 20101028
  6. SYNTHROID [Concomitant]
  7. SEROQUEL [Concomitant]

REACTIONS (1)
  - DEATH [None]
